FAERS Safety Report 7213869-2 (Version None)
Quarter: 2011Q1

REPORT INFORMATION
  Report Type: 
  Country: None (occurrence: None)
  Receive Date: 20110106
  Receipt Date: 20110103
  Transmission Date: 20110831
  Serious: Yes (Other)
  Sender: FDA-Public Use
  Company Number: US-TYCO HEALTHCARE/MALLINCKRODT-T201002402

PATIENT
  Sex: Female
  Weight: 70.748 kg

DRUGS (3)
  1. PROMETHAZINE [Suspect]
     Indication: NAUSEA
     Dosage: 25 MG Q8 HR PRN
     Route: 048
     Dates: start: 20100720, end: 20100721
  2. CIPROFLOXACIN HCL [Suspect]
     Indication: URINARY TRACT INFECTION
     Dosage: 500 MG, BID
     Route: 048
     Dates: start: 20100720, end: 20100725
  3. ACETAMINOPHEN AND HYDROCODONE BITARTRATE [Suspect]
     Indication: PAIN
     Dosage: 1 TAB Q6 PRN
     Route: 048
     Dates: start: 20100720, end: 20100721

REACTIONS (8)
  - ULCER [None]
  - ABDOMINAL PAIN [None]
  - HYPOAESTHESIA [None]
  - IMPAIRED DRIVING ABILITY [None]
  - GAIT DISTURBANCE [None]
  - FALL [None]
  - CONTUSION [None]
  - SENSORY LOSS [None]
